FAERS Safety Report 18505166 (Version 1)
Quarter: 2020Q4

REPORT INFORMATION
  Report Type: Spontaneous
  Country: JP (occurrence: JP)
  Receive Date: 20201116
  Receipt Date: 20201116
  Transmission Date: 20210114
  Serious: Yes (Other)
  Sender: FDA-Public Use
  Company Number: JP-TEVA-2020-JP-1848831

PATIENT
  Age: 72 Year
  Sex: Male

DRUGS (4)
  1. PREDNISOLONE. [Suspect]
     Active Substance: PREDNISOLONE
     Dosage: 10 MILLIGRAM DAILY;
     Route: 065
  2. PREDNISOLONE. [Suspect]
     Active Substance: PREDNISOLONE
     Indication: IDIOPATHIC PULMONARY FIBROSIS
     Dosage: 30 MILLIGRAM DAILY;
     Route: 065
  3. CYCLOSPORINE A [Suspect]
     Active Substance: CYCLOSPORINE
     Indication: IDIOPATHIC PULMONARY FIBROSIS
     Dosage: 200 MILLIGRAM DAILY;
     Route: 065
  4. CYCLOSPORINE A [Suspect]
     Active Substance: CYCLOSPORINE
     Dosage: 50 MILLIGRAM DAILY;
     Route: 065

REACTIONS (1)
  - Lung squamous cell carcinoma stage I [Recovering/Resolving]
